FAERS Safety Report 22592273 (Version 1)
Quarter: 2023Q2

REPORT INFORMATION
  Report Type: Spontaneous
  Country: US (occurrence: US)
  Receive Date: 20230613
  Receipt Date: 20230613
  Transmission Date: 20230722
  Serious: Yes (Other)
  Sender: FDA-Public Use
  Company Number: US-ABBVIE-5285300

PATIENT
  Sex: Male

DRUGS (2)
  1. HUMIRA [Suspect]
     Active Substance: ADALIMUMAB
     Indication: Product used for unknown indication
     Route: 058
  2. TINIDAZOLE [Suspect]
     Active Substance: TINIDAZOLE
     Indication: Product used for unknown indication
     Route: 065

REACTIONS (6)
  - Colectomy [Unknown]
  - Drug ineffective [Unknown]
  - Pouchitis [Unknown]
  - Drug ineffective [Unknown]
  - Anal fistula [Unknown]
  - Inflammatory bowel disease [Unknown]
